FAERS Safety Report 4732747-1 (Version None)
Quarter: 2005Q3

REPORT INFORMATION
  Report Type: 
  Country: None (occurrence: None)
  Receive Date: 20050803
  Receipt Date: 20050727
  Transmission Date: 20060218
  Serious: Yes (Life-Threatening)
  Sender: FDA-Public Use
  Company Number: FRPRM-E-20050080

PATIENT
  Age: 46 Year
  Sex: Female

DRUGS (5)
  1. NAVELBINE [Suspect]
     Indication: BREAST CANCER
     Dosage: 21MG PER DAY
     Route: 042
     Dates: start: 20050627, end: 20050627
  2. ARANESP [Concomitant]
     Route: 065
     Dates: start: 20050615, end: 20050615
  3. PREVISCAN [Concomitant]
     Dosage: 1TAB SINGLE DOSE
     Route: 065
     Dates: start: 20050615, end: 20050615
  4. TARDYFERON [Concomitant]
     Dosage: 1TAB SINGLE DOSE
     Route: 065
     Dates: start: 20050615, end: 20050615
  5. ONDANSETRON [Concomitant]
     Route: 065

REACTIONS (3)
  - BRONCHOSPASM [None]
  - OXYGEN SATURATION DECREASED [None]
  - TACHYPNOEA [None]
